FAERS Safety Report 7719577-3 (Version None)
Quarter: 2011Q3

REPORT INFORMATION
  Report Type: 
  Country: None (occurrence: None)
  Receive Date: 20110830
  Receipt Date: 20110825
  Transmission Date: 20111222
  Serious: Yes (Hospitalization)
  Sender: FDA-Public Use
  Company Number: JP-AMGEN-JPNCT2011035716

PATIENT
  Age: 77 Year
  Sex: Female
  Weight: 58 kg

DRUGS (5)
  1. INDOMETHACIN [Concomitant]
     Indication: BACK PAIN
     Dosage: UNK UNK, PRN
     Route: 062
     Dates: start: 20090625
  2. DENOSUMAB [Suspect]
     Indication: OSTEOPOROSIS
     Dosage: 60 MG, Q6MO
     Route: 058
     Dates: start: 20101028
  3. CALCICHEW D3 [Concomitant]
     Indication: OSTEOPOROSIS
     Dosage: UNK UNK, QD
     Route: 048
     Dates: start: 20081008
  4. SELTOUCH [Concomitant]
     Indication: BACK PAIN
     Dosage: UNK UNK, PRN
     Route: 062
     Dates: start: 20090801
  5. NASONEX [Concomitant]
     Indication: RHINITIS
     Dosage: UNK
     Route: 045
     Dates: start: 20101019

REACTIONS (1)
  - VIRAL INFECTION [None]
